FAERS Safety Report 8102410-8 (Version None)
Quarter: 2012Q1

REPORT INFORMATION
  Report Type: 
  Country: None (occurrence: None)
  Receive Date: 20120131
  Receipt Date: 20120131
  Transmission Date: 20120608
  Serious: No
  Sender: FDA-Public Use
  Company Number: None

PATIENT
  Sex: Female

DRUGS (1)
  1. ENBREL [Suspect]
     Indication: RHEUMATOID ARTHRITIS
     Dosage: 50 MG QW SQ
     Route: 058
     Dates: start: 20111101, end: 20120120

REACTIONS (5)
  - SENSATION OF HEAVINESS [None]
  - BLOOD PRESSURE INCREASED [None]
  - FATIGUE [None]
  - JOINT EFFUSION [None]
  - OEDEMA PERIPHERAL [None]
